FAERS Safety Report 5384368-8 (Version None)
Quarter: 2007Q3

REPORT INFORMATION
  Report Type: 
  Country: None (occurrence: None)
  Receive Date: 20070710
  Receipt Date: 20061009
  Transmission Date: 20080115
  Serious: Yes (Other)
  Sender: FDA-Public Use
  Company Number: 2006-02619

PATIENT
  Age: 81 Year
  Sex: Male
  Weight: 79.4 kg

DRUGS (1)
  1. VELCADE [Suspect]
     Indication: MULTIPLE MYELOMA
     Dosage: 1.30 MG/M2
     Dates: start: 20060925, end: 20060928

REACTIONS (2)
  - NEUROPATHY PERIPHERAL [None]
  - RENAL IMPAIRMENT [None]
